FAERS Safety Report 12587626 (Version 2)
Quarter: 2016Q3

REPORT INFORMATION
  Report Type: Report from Study
  Country: CA (occurrence: CA)
  Receive Date: 20160725
  Receipt Date: 20160908
  Transmission Date: 20161109
  Serious: Yes (Hospitalization)
  Sender: FDA-Public Use
  Company Number: CA-AMGEN-CANSL2016062274

PATIENT
  Age: 67 Year
  Weight: 86.4 kg

DRUGS (3)
  1. ATIVAN [Concomitant]
     Active Substance: LORAZEPAM
  2. RABEPRAZOLE [Concomitant]
     Active Substance: RABEPRAZOLE
  3. REPATHA [Suspect]
     Active Substance: EVOLOCUMAB
     Indication: PRODUCT USED FOR UNKNOWN INDICATION
     Dosage: 140 MG/1.0 ML, UNK
     Route: 058
     Dates: start: 201603

REACTIONS (10)
  - Therapeutic response unexpected [Unknown]
  - Rash erythematous [Recovered/Resolved]
  - Insomnia [Recovered/Resolved]
  - Nausea [Recovered/Resolved]
  - Abdominal pain upper [Recovered/Resolved]
  - Malaise [Unknown]
  - Back pain [Recovered/Resolved]
  - Acne [Unknown]
  - Skin discolouration [Unknown]
  - Decreased appetite [Recovered/Resolved]

NARRATIVE: CASE EVENT DATE: 2016
